FAERS Safety Report 4631669-4 (Version None)
Quarter: 2005Q2

REPORT INFORMATION
  Report Type: 
  Country: None (occurrence: None)
  Receive Date: 20050407
  Receipt Date: 20050401
  Transmission Date: 20051028
  Serious: No
  Sender: FDA-Public Use
  Company Number: 2005-BP-05396RO

PATIENT
  Sex: 0

DRUGS (7)
  1. METHOTREXATE [Suspect]
     Indication: ANKYLOSING SPONDYLITIS
     Dosage: SEE TEXT; PO
     Route: 048
  2. METHOTREXATE [Suspect]
     Indication: DERMATOMYOSITIS
     Dosage: SEE TEXT; PO
     Route: 048
  3. METHOTREXATE [Suspect]
     Indication: PSORIATIC ARTHROPATHY
     Dosage: SEE TEXT; PO
     Route: 048
  4. METHOTREXATE [Suspect]
     Indication: RHEUMATOID ARTHRITIS
     Dosage: SEE TEXT; PO
     Route: 048
  5. METHOTREXATE [Suspect]
     Indication: TAKAYASU'S ARTERITIS
     Dosage: SEE TEXT; PO
     Route: 048
  6. NONSTEROIDAL ANTIINFLAMMATORIES (NSAID'S) [Concomitant]
  7. CORTICOSTEROIDS (CORTICOSTEROIDS) [Concomitant]

REACTIONS (10)
  - ABORTION INDUCED [None]
  - ABORTION SPONTANEOUS [None]
  - CAESAREAN SECTION [None]
  - DRUG EXPOSURE DURING PREGNANCY [None]
  - HAEMANGIOMA [None]
  - JAUNDICE NEONATAL [None]
  - NEONATAL DISORDER [None]
  - NEONATAL RESPIRATORY DISTRESS SYNDROME [None]
  - PREMATURE BABY [None]
  - TALIPES [None]
